FAERS Safety Report 24917396 (Version 1)
Quarter: 2025Q1

REPORT INFORMATION
  Report Type: Spontaneous
  Country: US (occurrence: None)
  Receive Date: 20250203
  Receipt Date: 20250203
  Transmission Date: 20250408
  Serious: Yes (Hospitalization)
  Sender: FDA-CTU
  Company Number: None

PATIENT
  Age: 32 Year
  Sex: Female

DRUGS (5)
  1. METHOTREXATE [Suspect]
     Active Substance: METHOTREXATE
     Indication: Systemic lupus erythematosus
     Route: 042
     Dates: start: 202408
  2. DUPIXENT [Suspect]
     Active Substance: DUPILUMAB
  3. ICATIBANT ACETATE [Concomitant]
     Active Substance: ICATIBANT ACETATE
  4. BERINERT KIT [Concomitant]
  5. DUPIXENT [Concomitant]
     Active Substance: DUPILUMAB

REACTIONS (4)
  - Gastrointestinal disorder [None]
  - Facial nerve disorder [None]
  - Arthropathy [None]
  - Systemic lupus erythematosus [None]

NARRATIVE: CASE EVENT DATE: 20250130
